FAERS Safety Report 6763803-4 (Version None)
Quarter: 2010Q2

REPORT INFORMATION
  Report Type: 
  Country: None (occurrence: None)
  Receive Date: 20100610
  Receipt Date: 20100601
  Transmission Date: 20101027
  Serious: Yes (Hospitalization)
  Sender: FDA-Public Use
  Company Number: US-ROCHE-708081

PATIENT

DRUGS (2)
  1. BEVACIZUMAB [Suspect]
     Indication: BREAST CANCER
     Dosage: DAY 1 AND 15. GIVEN ONVER 30 TO 90 MINS. LAST CYCLE PRIOR TO SAE: 21 APRIL 2010.
     Route: 042
     Dates: start: 20100211
  2. PACLITAXEL [Suspect]
     Indication: BREAST CANCER
     Dosage: FREQUENCY: OVER 30 MINUTES ON DAYS 1, 8 AND 15. CYCLE 28 DAYS.
     Route: 042
     Dates: start: 20100211

REACTIONS (9)
  - ACUTE RESPIRATORY DISTRESS SYNDROME [None]
  - COGNITIVE DISORDER [None]
  - CONFUSIONAL STATE [None]
  - DECREASED APPETITE [None]
  - DYSPNOEA [None]
  - FATIGUE [None]
  - MUSCULAR WEAKNESS [None]
  - PNEUMONITIS [None]
  - SEPSIS [None]
